FAERS Safety Report 25828681 (Version 1)
Quarter: 2025Q3

REPORT INFORMATION
  Report Type: Spontaneous
  Country: CH (occurrence: CH)
  Receive Date: 20250922
  Receipt Date: 20250922
  Transmission Date: 20251020
  Serious: Yes (Hospitalization, Other)
  Sender: GLAXOSMITHKLINE
  Company Number: CH-GLAXOSMITHKLINE INC-CH2025GSK120223

PATIENT
  Age: 84 Year
  Sex: Female

DRUGS (6)
  1. VALACYCLOVIR [Suspect]
     Active Substance: VALACYCLOVIR HYDROCHLORIDE
     Indication: Herpes simplex
     Dosage: 500 MG, BID (M0)
  2. VALACYCLOVIR [Suspect]
     Active Substance: VALACYCLOVIR HYDROCHLORIDE
     Dosage: 1 G, TID
  3. VALACYCLOVIR [Suspect]
     Active Substance: VALACYCLOVIR HYDROCHLORIDE
     Dosage: 500 MG, BID
  4. ACYCLOVIR [Suspect]
     Active Substance: ACYCLOVIR
     Indication: Herpes simplex
     Dosage: 10 MG/KG, TID
  5. RUXOLITINIB [Concomitant]
     Active Substance: RUXOLITINIB
     Indication: Myelofibrosis
  6. RUXOLITINIB [Concomitant]
     Active Substance: RUXOLITINIB

REACTIONS (4)
  - Pathogen resistance [Unknown]
  - Drug resistance [Unknown]
  - Viral mutation identified [Unknown]
  - Acute kidney injury [Unknown]
